FAERS Safety Report 6719294-2 (Version None)
Quarter: 2010Q2

REPORT INFORMATION
  Report Type: 
  Country: None (occurrence: None)
  Receive Date: 20100511
  Receipt Date: 20100502
  Transmission Date: 20101027
  Serious: Yes (Other)
  Sender: FDA-Public Use
  Company Number: IL-JNJFOC-20100500696

PATIENT
  Age: 40 Year
  Sex: Male

DRUGS (2)
  1. REMICADE [Suspect]
     Indication: PSORIASIS
     Dosage: INFUSIONS 1-8
     Route: 042
  2. REMICADE [Suspect]
     Dosage: INFUSION 9
     Route: 042

REACTIONS (1)
  - TUBERCULIN TEST POSITIVE [None]
